FAERS Safety Report 17917244 (Version 2)
Quarter: 2020Q2

REPORT INFORMATION
  Report Type: Spontaneous
  Country: IT (occurrence: IT)
  Receive Date: 20200619
  Receipt Date: 20200629
  Transmission Date: 20200714
  Serious: Yes (Death)
  Sender: FDA-Public Use
  Company Number: IT-ROCHE-2621367

PATIENT
  Age: 61 Year
  Sex: Male
  Weight: 85 kg

DRUGS (18)
  1. NORADRENALINE [NOREPINEPHRINE] [Concomitant]
     Active Substance: NOREPINEPHRINE
  2. FUROSEMIDE. [Concomitant]
     Active Substance: FUROSEMIDE
     Route: 065
     Dates: start: 20200331, end: 20200406
  3. FENTANYL. [Concomitant]
     Active Substance: FENTANYL
     Dosage: (IV - 150 G/H 3ML/H 250 G/50ML)
     Route: 065
     Dates: start: 20200330, end: 20200417
  4. PLAQUENIL [Concomitant]
     Active Substance: HYDROXYCHLOROQUINE SULFATE
     Route: 065
     Dates: start: 20200318, end: 20200325
  5. PANTORC [Concomitant]
     Active Substance: PANTOPRAZOLE SODIUM
     Route: 065
     Dates: start: 20200319, end: 20200330
  6. KALETRA [Concomitant]
     Active Substance: LOPINAVIR\RITONAVIR
     Dosage: 200MG+50MG; 2/DAY
     Route: 065
     Dates: start: 20200319, end: 20200324
  7. URBASON [METHYLPREDNISOLONE] [Concomitant]
     Active Substance: METHYLPREDNISOLONE
     Dosage: (IM IV 3V 20MG+3V 1 ML; 1/DAY)
     Route: 042
     Dates: start: 20200320, end: 20200330
  8. PIPERACILLIN. [Concomitant]
     Active Substance: PIPERACILLIN SODIUM
     Dosage: 4G+500; 3/DAY
     Route: 065
     Dates: start: 20200318, end: 20200325
  9. DECADRON [Concomitant]
     Active Substance: DEXAMETHASONE
     Dosage: (IV - 4MG X 1)
     Route: 065
     Dates: start: 20200409, end: 20200417
  10. CISATRACURIUM. [Concomitant]
     Active Substance: CISATRACURIUM
     Dosage: (IV - 3 G/KG/MIN, 6.92 ML/H 2MG/ML)
     Route: 065
     Dates: start: 20200330, end: 20200417
  11. APIDRA [Concomitant]
     Active Substance: INSULIN GLULISINE
     Dosage: 100 IU/ML; 3/DAY
     Route: 065
     Dates: start: 20200327, end: 20200330
  12. PANTORC [Concomitant]
     Active Substance: PANTOPRAZOLE SODIUM
     Dosage: (IV - 40MG X1)
     Route: 065
     Dates: start: 20200319, end: 20200417
  13. PROPOFOL. [Concomitant]
     Active Substance: PROPOFOL
     Dosage: (IV - 3MG/KG/H 23.1 ML/H?1000MG/100ML)
     Route: 065
     Dates: start: 20200330, end: 20200417
  14. CLEXANE [Concomitant]
     Active Substance: ENOXAPARIN SODIUM
     Dosage: (6000 IU - 0.6ML; 1/DAY)
     Route: 065
     Dates: start: 20200323, end: 20200330
  15. CLEXANE [Concomitant]
     Active Substance: ENOXAPARIN SODIUM
     Dosage: (SC - 6000 IU X2)
     Route: 065
     Dates: start: 20200323, end: 20200417
  16. ROCURONIUM [Concomitant]
     Active Substance: ROCURONIUM BROMIDE
     Dosage: (IV - 0.6 MG/KG/H 4.61ML/H 10MG/ML)
     Route: 065
     Dates: start: 20200405, end: 20200409
  17. ROACTEMRA [Suspect]
     Active Substance: TOCILIZUMAB
     Indication: COVID-19 PNEUMONIA
     Route: 042
     Dates: start: 20200319, end: 20200320
  18. FLUIMUCIL A [Concomitant]

REACTIONS (4)
  - Interstitial lung disease [Fatal]
  - Intentional product use issue [Unknown]
  - Interleukin level increased [Unknown]
  - Off label use [Unknown]

NARRATIVE: CASE EVENT DATE: 20200319
